FAERS Safety Report 10676619 (Version 1)
Quarter: 2014Q4

REPORT INFORMATION
  Report Type: Spontaneous
  Country: US (occurrence: None)
  Receive Date: 20141223
  Receipt Date: 20141223
  Transmission Date: 20150529
  Serious: No
  Sender: FDA-Public Use
  Company Number: None

PATIENT
  Age: 52 Year
  Sex: Female
  Weight: 105.24 kg

DRUGS (1)
  1. SOLODYN [Suspect]
     Active Substance: MINOCYCLINE HYDROCHLORIDE
     Indication: ACNE
     Dosage: 1 PILL
     Route: 048
     Dates: start: 20141031, end: 20141212

REACTIONS (4)
  - Gingival pain [None]
  - Gingival bleeding [None]
  - Gingival erythema [None]
  - Gingival disorder [None]

NARRATIVE: CASE EVENT DATE: 20141031
